FAERS Safety Report 6197733-6 (Version None)
Quarter: 2009Q2

REPORT INFORMATION
  Report Type: 
  Country: None (occurrence: None)
  Receive Date: 20090514
  Receipt Date: 20080515
  Transmission Date: 20091009
  Serious: Yes (Hospitalization)
  Sender: FDA-Public Use
  Company Number: WAES 0805USA04555

PATIENT
  Age: 59 Year
  Sex: Female

DRUGS (1)
  1. HYDRODIURIL [Suspect]

REACTIONS (2)
  - HYPONATRAEMIA [None]
  - HYPOTENSION [None]
